FAERS Safety Report 8974997 (Version 3)
Quarter: 2013Q1

REPORT INFORMATION
  Report Type: Report from Study
  Country: US (occurrence: US)
  Receive Date: 20121219
  Receipt Date: 20130319
  Transmission Date: 20140127
  Serious: Yes (Hospitalization, Other)
  Sender: FDA-Public Use
  Company Number: US-ABBOTT-12P-163-1022146-00

PATIENT
  Age: 53 None
  Sex: Female
  Weight: 72.19 kg

DRUGS (32)
  1. HUMIRA [Suspect]
     Indication: RHEUMATOID ARTHRITIS
     Route: 058
     Dates: start: 201203, end: 201207
  2. HUMIRA [Suspect]
     Indication: COLITIS ULCERATIVE
  3. ARAVA [Concomitant]
     Indication: PRODUCT USED FOR UNKNOWN INDICATION
  4. CALCIUM WITH VIT D [Concomitant]
     Indication: MINERAL SUPPLEMENTATION
     Dosage: 1200/80MG
  5. CELEBREX [Concomitant]
     Indication: PRODUCT USED FOR UNKNOWN INDICATION
     Route: 048
  6. CELEXA [Concomitant]
     Indication: RHEUMATOID ARTHRITIS
     Route: 048
  7. CLARINEX [Concomitant]
     Indication: SEASONAL ALLERGY
     Route: 048
  8. ESTRADIOL [Concomitant]
     Indication: OESTROGEN REPLACEMENT THERAPY
     Route: 048
  9. FOSAMAX [Concomitant]
     Indication: BONE DENSITY ABNORMAL
     Dosage: ONCE A WEEK
     Route: 048
  10. LEVOTHYROXINE SODIUM [Concomitant]
     Indication: HYPOTHYROIDISM
     Route: 048
  11. LIALDA [Concomitant]
     Indication: COLITIS ULCERATIVE
     Dosage: TAKE WITH THE EVENING MEAL
     Route: 048
  12. MULTIVITAMINS [Concomitant]
     Indication: VITAMIN SUPPLEMENTATION
  13. NASONEX [Concomitant]
     Indication: SEASONAL ALLERGY
     Dosage: NASAL SUSPENSION, 1 SPRAY IN EACH NOSTRIL
     Route: 048
  14. SALAGEN [Concomitant]
     Indication: SJOGREN^S SYNDROME
  15. VESICARE [Concomitant]
     Indication: BLADDER SPASM
     Route: 048
  16. WELLBUTRIN XL [Concomitant]
     Indication: DEPRESSION
     Route: 048
  17. LISINOPRIL [Concomitant]
     Indication: PRODUCT USED FOR UNKNOWN INDICATION
     Dosage: 1/2 TABLET
     Route: 048
  18. IRON [Concomitant]
     Indication: PRODUCT USED FOR UNKNOWN INDICATION
     Route: 048
  19. CARVEDILOL [Concomitant]
     Dosage: 1/2 TABLET
     Route: 048
  20. POTASSIUM CHLORIDE [Concomitant]
     Route: 048
  21. VITAMIN B-12 [Concomitant]
     Indication: PRODUCT USED FOR UNKNOWN INDICATION
     Route: 048
  22. VITAMIN D3 [Concomitant]
     Indication: PRODUCT USED FOR UNKNOWN INDICATION
     Dosage: TAKE AS DIRECTED
     Route: 048
  23. FLEXERIL [Concomitant]
     Indication: PRODUCT USED FOR UNKNOWN INDICATION
     Dosage: AS NEEDED
     Route: 048
  24. IMURAN [Concomitant]
     Route: 048
  25. MUPIROCIN [Concomitant]
     Indication: PRODUCT USED FOR UNKNOWN INDICATION
     Dosage: EXTERNAL; APPLY A SMALL AMOUNT AS DIRECTED
  26. NYSTOP POV/D [Concomitant]
     Indication: PRODUCT USED FOR UNKNOWN INDICATION
     Dosage: APPLY 2 TO 3 TIMES TO AFFECTED AREAS
  27. SALAGEN [Concomitant]
     Indication: PRODUCT USED FOR UNKNOWN INDICATION
     Route: 048
  28. SILVADENE [Concomitant]
     Indication: PRODUCT USED FOR UNKNOWN INDICATION
  29. TRAMADOL HCL [Concomitant]
     Indication: PAIN
     Dosage: 1 TO 2 TABLET EVERY 4 TO 6 HOURS AS NEEDED
     Route: 048
  30. TRIAMCINOLONE ACETONIDE [Concomitant]
     Indication: PRODUCT USED FOR UNKNOWN INDICATION
     Dosage: EXTERNAL
  31. TYLENOL WITH CODEINE [Concomitant]
     Indication: PAIN
     Dosage: 1 TABLET EVERY 4 TO 6 HOURS
  32. VALTREX [Concomitant]
     Indication: PRODUCT USED FOR UNKNOWN INDICATION

REACTIONS (13)
  - Cardiomyopathy [Unknown]
  - Left ventricular failure [Unknown]
  - Weight increased [Recovered/Resolved]
  - Dyspnoea exertional [Recovered/Resolved]
  - Malaise [Recovered/Resolved]
  - Cough [Recovered/Resolved]
  - Orthopnoea [Unknown]
  - Skin discolouration [Recovered/Resolved]
  - Pulmonary oedema [Recovered/Resolved]
  - Cardiac valve disease [Unknown]
  - Cardiac failure congestive [Not Recovered/Not Resolved]
  - Nausea [Unknown]
  - Blood pressure decreased [Unknown]
